FAERS Safety Report 5726565-5 (Version None)
Quarter: 2008Q2

REPORT INFORMATION
  Report Type: 
  Country: None (occurrence: None)
  Receive Date: 20080502
  Receipt Date: 20080418
  Transmission Date: 20081010
  Serious: Yes (Life-Threatening)
  Sender: FDA-Public Use
  Company Number: IT-GENENTECH-259895

PATIENT
  Sex: Female
  Weight: 49 kg

DRUGS (2)
  1. BEVACIZUMAB [Suspect]
     Indication: METASTATIC MALIGNANT MELANOMA
     Dosage: 480 MG, Q14D
     Route: 042
     Dates: start: 20080331, end: 20080414
  2. DACARBAZINE [Suspect]
     Indication: METASTATIC MALIGNANT MELANOMA
     Dosage: 1180 MG, Q4W
     Route: 042
     Dates: start: 20080331, end: 20080331

REACTIONS (1)
  - HYPERSENSITIVITY [None]
